FAERS Safety Report 13404385 (Version 1)
Quarter: 2017Q2

REPORT INFORMATION
  Report Type: Spontaneous
  Country: US (occurrence: US)
  Receive Date: 20170405
  Receipt Date: 20170405
  Transmission Date: 20170830
  Serious: No
  Sender: FDA-Public Use
  Company Number: US-B.I. PHARMACEUTICALS,INC./RIDGEFIELD-2017-BI-018936

PATIENT
  Age: 67 Year
  Sex: Female

DRUGS (2)
  1. VALSARTAN HCTZ [Concomitant]
     Active Substance: HYDROCHLOROTHIAZIDE\VALSARTAN
     Indication: HYPERTENSION
     Dosage: ONCE DAILY;  FORM STRENGTH: 320-25MG; FORMULATION: TABLET
     Route: 048
  2. MIRAPEX [Suspect]
     Active Substance: PRAMIPEXOLE DIHYDROCHLORIDE
     Indication: PARKINSON^S DISEASE
     Dosage: ONCE DAILY BEFORE BED;  FORM STRENGTH: 3.0 MG; FORMULATION: TABLET? ADMINISTRATION CORRECT? YES ?ACT
     Route: 048
     Dates: start: 201702

REACTIONS (5)
  - Pain in extremity [Recovered/Resolved]
  - Feeling jittery [Recovered/Resolved]
  - Tremor [Recovered/Resolved]
  - Palpitations [Recovered/Resolved]
  - Insomnia [Recovered/Resolved]

NARRATIVE: CASE EVENT DATE: 201702
